FAERS Safety Report 20009428 (Version 2)
Quarter: 2021Q4

REPORT INFORMATION
  Report Type: Spontaneous
  Country: NL (occurrence: NL)
  Receive Date: 20211028
  Receipt Date: 20211203
  Transmission Date: 20220303
  Serious: Yes (Other)
  Sender: FDA-Public Use
  Company Number: NL-NAPPMUNDI-GBR-2021-0091824

PATIENT
  Sex: Female

DRUGS (16)
  1. MS CONTIN [Suspect]
     Active Substance: MORPHINE SULFATE
     Indication: Abdominal pain upper
     Dosage: 10 MG, UNK (STRENGTH 10MG)
     Route: 048
  2. MS CONTIN [Suspect]
     Active Substance: MORPHINE SULFATE
     Dosage: UNK (DIFFERENT STRENGTHS)
     Route: 048
  3. MS CONTIN [Suspect]
     Active Substance: MORPHINE SULFATE
     Dosage: 10 MG, UNK (STRENGTH 10MG) (10AM AND 10PM, 10MG MS CONTIN)
     Route: 048
  4. MS CONTIN [Suspect]
     Active Substance: MORPHINE SULFATE
     Dosage: UNK (22H 10MG OR 15MG)
     Route: 065
  5. MS CONTIN [Suspect]
     Active Substance: MORPHINE SULFATE
     Dosage: 20 MG, UNK (STRENGTH: 20 MG)
     Route: 065
  6. MS CONTIN [Suspect]
     Active Substance: MORPHINE SULFATE
     Dosage: 30 MG, UNK (STRENGTH: 30 MG)
     Route: 065
  7. OXYCODONE HYDROCHLORIDE [Concomitant]
     Active Substance: OXYCODONE HYDROCHLORIDE
     Dosage: 10 MG, PRN
     Route: 065
  8. OXYCODONE HYDROCHLORIDE [Concomitant]
     Active Substance: OXYCODONE HYDROCHLORIDE
     Dosage: 5 MG, PRN
     Route: 065
  9. OMEPRAZOLE [Concomitant]
     Active Substance: OMEPRAZOLE
     Dosage: UNK (1XDGS IN THE MORNING)
  10. CREON FORTE [Concomitant]
     Dosage: UNK (TAKE WITH FOOD CONTAINING FAT)
  11. RIZATRIPTAN [Concomitant]
     Active Substance: RIZATRIPTAN
     Dosage: UNK (IF NECESSARY)
  12. ACETAMINOPHEN [Concomitant]
     Active Substance: ACETAMINOPHEN
     Dosage: UNK (IF NECESSARY)
  13. ETHINYL ESTRADIOL\LEVONORGESTREL [Concomitant]
     Active Substance: ETHINYL ESTRADIOL\LEVONORGESTREL
     Dosage: UNK (1XDGS IN THE EVENING)
  14. CALCIUM CARBONATE [Concomitant]
     Active Substance: CALCIUM CARBONATE
     Dosage: UNK (1XDGS IN THE MORNING)
  15. LEVOTHYROXINE [Concomitant]
     Active Substance: LEVOTHYROXINE
     Dosage: UNK (1XDGS IN THE MORNING)
  16. ZOLPIDEMTARTR [Concomitant]
     Dosage: UNK (IF NECESSARY FOR THE NIGHT)

REACTIONS (4)
  - Pancreatitis [Not Recovered/Not Resolved]
  - Withdrawal syndrome [Unknown]
  - Inappropriate schedule of product discontinuation [Unknown]
  - Vomiting [Unknown]
